FAERS Safety Report 9432393 (Version 3)
Quarter: 2013Q3

REPORT INFORMATION
  Report Type: Spontaneous
  Country: JP (occurrence: JP)
  Receive Date: 20130731
  Receipt Date: 20130903
  Transmission Date: 20140515
  Serious: Yes (Death, Life-Threatening, Hospitalization, Disabling)
  Sender: FDA-Public Use
  Company Number: JP-SANOFI-AVENTIS-2013SA075080

PATIENT
  Age: 81 Year
  Sex: Female
  Weight: 59.6 kg

DRUGS (16)
  1. TAXOTERE [Suspect]
     Indication: ANGIOSARCOMA
     Dosage: DOSE FREQUENCY : 3 TIMES IN 4 WEEKS
     Route: 042
     Dates: start: 20100415, end: 20100429
  2. TAXOTERE [Suspect]
     Indication: ANGIOSARCOMA
     Dosage: DOSE FREQUENCY : 3 TIMES IN 4 WEEKS
     Route: 042
     Dates: start: 20100513, end: 20110203
  3. TAXOTERE [Suspect]
     Indication: ANGIOSARCOMA
     Dosage: DOSE FREQUENCY : 3 TIMES IN 4 WEEKS
     Route: 042
     Dates: start: 20110502, end: 20110616
  4. THERAPEUTIC RADIOPHARMACEUTICALS [Concomitant]
     Indication: ANGIOSARCOMA
     Dosage: 70 GY
     Dates: start: 20100504, end: 20100618
  5. DECADRON [Concomitant]
     Dosage: WITH EVERY ADMINSRATION OF DOCETAXEL
  6. KYTRIL [Concomitant]
     Dosage: WITH EVERY ADMINISTRATION OF DOCETAXEL
  7. EMEND [Concomitant]
     Dosage: ON 1ST DAY WITH DOCETAXEL
  8. EMEND [Concomitant]
     Dosage: FROM 2ND TO 7TH DAY WITH DOCETAXEL
  9. BAYASPIRIN [Concomitant]
     Route: 048
  10. MEVALOTIN [Concomitant]
     Route: 048
  11. MUCOSOLVAN [Concomitant]
     Route: 048
  12. ONON [Concomitant]
     Route: 048
  13. MERISLON [Concomitant]
     Route: 048
  14. MUCODYNE [Concomitant]
     Route: 048
  15. TAKEPRON [Concomitant]
     Route: 048
  16. POLYCARBOPHIL CALCIUM [Concomitant]
     Route: 048

REACTIONS (6)
  - Pleural effusion [Not Recovered/Not Resolved]
  - Respiratory failure [Fatal]
  - Cardiac failure [Fatal]
  - Decreased appetite [Unknown]
  - Malaise [Unknown]
  - Decreased appetite [Unknown]
